FAERS Safety Report 9367641 (Version 1)
Quarter: 2013Q2

REPORT INFORMATION
  Report Type: Spontaneous
  Country: US (occurrence: US)
  Receive Date: 20130625
  Receipt Date: 20130625
  Transmission Date: 20140414
  Serious: Yes (Other)
  Sender: FDA-Public Use
  Company Number: US-US-EMD SERONO, INC.-7091777

PATIENT
  Age: 25 Year
  Sex: Female

DRUGS (2)
  1. REBIF [Suspect]
     Indication: MULTIPLE SCLEROSIS
     Route: 058
     Dates: start: 20041220, end: 201102
  2. REBIF [Suspect]
     Route: 058
     Dates: start: 201108

REACTIONS (3)
  - Multiple sclerosis relapse [Recovered/Resolved]
  - Injection site infection [Not Recovered/Not Resolved]
  - Injection site erythema [Not Recovered/Not Resolved]
